FAERS Safety Report 19960253 (Version 2)
Quarter: 2021Q4

REPORT INFORMATION
  Report Type: Spontaneous
  Country: US (occurrence: US)
  Receive Date: 20211015
  Receipt Date: 20211022
  Transmission Date: 20220303
  Serious: Yes (Death, Life-Threatening, Hospitalization, Other)
  Sender: FDA-Public Use
  Company Number: NL-SA-2021SA340196

PATIENT
  Age: 65 Year
  Sex: Male

DRUGS (3)
  1. OXALIPLATIN [Suspect]
     Active Substance: OXALIPLATIN
     Indication: Adenocarcinoma of colon
     Dosage: UNK, QCY
  2. OXALIPLATIN [Suspect]
     Active Substance: OXALIPLATIN
  3. FLUOROURACIL 5 [Concomitant]
     Indication: Adenocarcinoma of colon
     Dosage: 5 FLUOROURACIL

REACTIONS (12)
  - Pulmonary fibrosis [Fatal]
  - Respiratory alkalosis [Fatal]
  - Dyspnoea [Fatal]
  - Pneumothorax [Fatal]
  - Cough [Fatal]
  - Productive cough [Fatal]
  - Chills [Fatal]
  - Illness [Fatal]
  - Disorganised speech [Fatal]
  - Rales [Fatal]
  - Wheezing [Fatal]
  - Leukocytosis [Fatal]
